FAERS Safety Report 9520072 (Version 1)
Quarter: 2013Q3

REPORT INFORMATION
  Report Type: Report from Study
  Country: BR (occurrence: BR)
  Receive Date: 20130912
  Receipt Date: 20130912
  Transmission Date: 20140515
  Serious: Yes (Other)
  Sender: FDA-Public Use
  Company Number: PHHY2013BR099072

PATIENT
  Sex: Female

DRUGS (6)
  1. FORASEQ [Suspect]
     Indication: ASTHMA
     Dosage: 24 MCG 2 PER DAY, 800 MCG 2 PER DAY
  2. FORASEQ [Suspect]
     Dosage: DOSE REDUCED TO HALF
  3. FORASEQ [Suspect]
     Dosage: CAPSULES OF FORMOTEROL AND 2 CAPSULES OF BUDESONIDE
  4. BUDESONIDE [Suspect]
     Indication: ASTHMA
     Dosage: 800 UG,2XS/DAY
     Route: 045
  5. BUDESONIDE [Suspect]
     Dosage: 100 UG, PER DAY
  6. MONTELUKAST [Suspect]
     Indication: ASTHMA
     Dosage: UNK UKN, UNK

REACTIONS (6)
  - Gastrooesophageal reflux disease [Unknown]
  - Sinusitis [Unknown]
  - Asthmatic crisis [Recovering/Resolving]
  - Eosinophilic oesophagitis [Unknown]
  - Blood immunoglobulin E increased [Unknown]
  - Urticaria chronic [Unknown]
